FAERS Safety Report 10050172 (Version 1)
Quarter: 2014Q2

REPORT INFORMATION
  Report Type: Spontaneous
  Country: US (occurrence: US)
  Receive Date: 20140401
  Receipt Date: 20140401
  Transmission Date: 20141212
  Serious: Yes (Other)
  Sender: FDA-Public Use
  Company Number: US-BAYER-2014-045200

PATIENT
  Age: 63 Year
  Sex: Female

DRUGS (1)
  1. ACETYLSALICYLIC ACID (} 100 MG) [Suspect]
     Dosage: HEAVY USE
     Route: 048

REACTIONS (4)
  - Gastrointestinal haemorrhage [None]
  - Iron deficiency anaemia [None]
  - Pyogenic granuloma [None]
  - Occult blood positive [None]
